FAERS Safety Report 4507688-5 (Version None)
Quarter: 2004Q4

REPORT INFORMATION
  Report Type: 
  Country: None (occurrence: None)
  Receive Date: 20040928
  Receipt Date: 20040614
  Transmission Date: 20050328
  Serious: No
  Sender: FDA-Public Use
  Company Number: 04P-163-0263918-00

PATIENT
  Age: 84 Year
  Sex: Male
  Weight: 74.8435 kg

DRUGS (8)
  1. HUMIRA [Suspect]
     Indication: RHEUMATOID ARTHRITIS
     Dosage: 40 MG, SUBCUTANEOUS
     Route: 058
     Dates: start: 20040612
  2. PREDNISONE [Concomitant]
  3. METHOTREXATE SODIUM [Concomitant]
  4. FOLIC ACID [Concomitant]
  5. CARISOPRODOL [Concomitant]
  6. LORACET PLUS [Concomitant]
  7. EFFEXOR XR [Concomitant]
  8. ALPRAZOLAM [Concomitant]

REACTIONS (1)
  - HEADACHE [None]
